FAERS Safety Report 8088975-3 (Version None)
Quarter: 2012Q1

REPORT INFORMATION
  Report Type: 
  Country: None (occurrence: None)
  Receive Date: 20120128
  Receipt Date: 20110831
  Transmission Date: 20120608
  Serious: Yes (Hospitalization, Other)
  Sender: FDA-Public Use
  Company Number: US-ABBOTT-11P-163-0834371-00

PATIENT
  Sex: Female
  Weight: 81.266 kg

DRUGS (8)
  1. HUMIRA [Suspect]
     Dates: start: 20101201, end: 20110301
  2. HUMIRA [Suspect]
     Dates: start: 20110401, end: 20110501
  3. PREDNISONE TAB [Concomitant]
     Indication: CROHN'S DISEASE
  4. HYDROCORTISONE [Concomitant]
     Indication: RECTAL STENOSIS
  5. HUMIRA [Suspect]
     Indication: CROHN'S DISEASE
     Dates: start: 20100601
  6. EXFORGE [Concomitant]
     Indication: HYPERTENSION
  7. VALTREX [Suspect]
     Indication: HERPES ZOSTER
     Dates: start: 20110501
  8. BYSTOLIC [Concomitant]
     Indication: HYPERTENSION

REACTIONS (10)
  - URINARY TRACT INFECTION [None]
  - NAUSEA [None]
  - HAEMATURIA [None]
  - GASTROINTESTINAL INFECTION [None]
  - BLOOD URINE PRESENT [None]
  - HERPES ZOSTER [None]
  - DRUG INEFFECTIVE [None]
  - ENTEROVESICAL FISTULA [None]
  - SINUSITIS [None]
  - BACK PAIN [None]
